FAERS Safety Report 18242301 (Version 1)
Quarter: 2020Q3

REPORT INFORMATION
  Report Type: Spontaneous
  Country: US (occurrence: US)
  Receive Date: 20200908
  Receipt Date: 20200908
  Transmission Date: 20201103
  Serious: Yes (Disabling, Other)
  Sender: FDA-Public Use
  Company Number: US-ELI_LILLY_AND_COMPANY-US202008002838

PATIENT
  Sex: Female
  Weight: 58.5 kg

DRUGS (6)
  1. EMGALITY [Suspect]
     Active Substance: GALCANEZUMAB-GNLM
     Indication: MIGRAINE
     Dosage: 120 MG, MONTHLY (1/M)
     Route: 058
     Dates: start: 20191102, end: 20191102
  2. VIIBRYD [Concomitant]
     Active Substance: VILAZODONE HYDROCHLORIDE
     Dosage: 40 MG, DAILY
  3. RIZATRIPTAN. [Concomitant]
     Active Substance: RIZATRIPTAN
     Indication: MIGRAINE
     Dosage: 10 MG, PRN
  4. ALEVE [Concomitant]
     Active Substance: NAPROXEN SODIUM
     Dosage: UNK, PRN
  5. BOTOX [Concomitant]
     Active Substance: ONABOTULINUMTOXINA
     Indication: MIGRAINE
  6. LAMOTRIGINE. [Concomitant]
     Active Substance: LAMOTRIGINE
     Dosage: 25 MG, DAILY

REACTIONS (4)
  - Abdominal distension [Unknown]
  - Ulcer [Unknown]
  - Abdominal pain [Not Recovered/Not Resolved]
  - Constipation [Unknown]
